FAERS Safety Report 13253808 (Version 1)
Quarter: 2017Q1

REPORT INFORMATION
  Report Type: Spontaneous
  Country: US (occurrence: US)
  Receive Date: 20170220
  Receipt Date: 20170220
  Transmission Date: 20170428
  Serious: Yes (Other)
  Sender: FDA-Public Use
  Company Number: US-009507513-1702USA008167

PATIENT

DRUGS (2)
  1. HEXADROL [Suspect]
     Active Substance: DEXAMETHASONE
     Dosage: 8 MG/DAY DURING CYCLES 1 TO 2 ON THE SAME DAYS AS CARFILZOMIB, OPTIONAL FOR CYCLES}=3
     Route: 048
  2. CARFILZOMIB [Suspect]
     Active Substance: CARFILZOMIB
     Indication: PLASMA CELL MYELOMA
     Dosage: 20 MG/M2 ON D1-2 (CYCLE 1), 27 MG/M2 ON D8 (CYCLE 1), IF TOLERATED, 56 MG/M2 STARTED ON D1 (CYCLE 2)

REACTIONS (3)
  - Thrombocytopenia [Unknown]
  - Anaemia [Unknown]
  - Pneumonia [Unknown]
